FAERS Safety Report 8177204-8 (Version None)
Quarter: 2012Q1

REPORT INFORMATION
  Report Type: 
  Country: None (occurrence: None)
  Receive Date: 20120301
  Receipt Date: 20120221
  Transmission Date: 20120608
  Serious: Yes (Hospitalization, Other)
  Sender: FDA-Public Use
  Company Number: US-BAYER-2011-080739

PATIENT
  Age: 47 Year
  Sex: Female
  Weight: 83.9 kg

DRUGS (1)
  1. YAZ [Suspect]
     Indication: PREMENSTRUAL SYNDROME
     Dosage: UNK
     Dates: start: 20100501, end: 20100801

REACTIONS (11)
  - INJURY [None]
  - CEREBROVASCULAR ACCIDENT [None]
  - COAGULOPATHY [None]
  - TRANSIENT ISCHAEMIC ATTACK [None]
  - EMOTIONAL DISTRESS [None]
  - MENTAL DISORDER [None]
  - PULMONARY EMBOLISM [None]
  - PAIN [None]
  - THROMBOSIS [None]
  - CEREBRAL HAEMORRHAGE [None]
  - ASTHENIA [None]
